FAERS Safety Report 13072919 (Version 2)
Quarter: 2018Q1

REPORT INFORMATION
  Report Type: Spontaneous
  Country: US (occurrence: US)
  Receive Date: 20161229
  Receipt Date: 20180118
  Transmission Date: 20180508
  Serious: No
  Sender: FDA-Public Use
  Company Number: US-PFIZER INC-2016590123

PATIENT
  Age: 85 Year
  Sex: Female

DRUGS (33)
  1. VITAMIN D3 [Concomitant]
     Active Substance: CHOLECALCIFEROL
     Indication: SUPPLEMENTATION THERAPY
     Dosage: 2000 IU, DAILY
     Route: 048
  2. IBUPROFEN. [Concomitant]
     Active Substance: IBUPROFEN
     Indication: PAIN
     Dosage: 600 MG, AS NEEDED
     Route: 048
  3. MILK OF MAGNESIA [Concomitant]
     Active Substance: MAGNESIUM HYDROXIDE
     Indication: CONSTIPATION
     Dosage: 30 ML, AS NEEDED (PRN, ONCE DAILY)
     Route: 048
  4. ASPIRIN (E.C.) [Concomitant]
     Active Substance: ASPIRIN
     Dosage: 81 MG, 1X/DAY
  5. PHENAZOPYRIDINE. [Concomitant]
     Active Substance: PHENAZOPYRIDINE
     Indication: ANALGESIC THERAPY
     Dosage: 200 MG, AS NEEDED (AFTER MEALS, TID)
     Route: 048
  6. POLYETHYLENE GLYCOL [Concomitant]
     Active Substance: POLYETHYLENE GLYCOLS
     Indication: CONSTIPATION
     Dosage: 17 G, AS NEEDED (ONCE DAILY)
  7. CALCIUM/D3 [Concomitant]
     Active Substance: CALCIUM\CHOLECALCIFEROL
     Indication: SUPPLEMENTATION THERAPY
     Dosage: 2 DF, DAILY [CALCIUM CARBONATE 600 U]/[COLECALCIFEROL 500 U]
  8. LORATADINE. [Concomitant]
     Active Substance: LORATADINE
     Indication: SEASONAL ALLERGY
     Dosage: 10 MG, AS NEEDED
  9. PHENAZOPYRIDINE. [Concomitant]
     Active Substance: PHENAZOPYRIDINE
     Indication: URINARY TRACT PAIN
  10. EYE DROPS [Concomitant]
     Active Substance: UNSPECIFIED INGREDIENT
     Indication: HYPERSENSITIVITY
  11. AZO CRANBERRY [Concomitant]
     Active Substance: DIETARY SUPPLEMENT
     Indication: PROPHYLAXIS
  12. LYRICA [Suspect]
     Active Substance: PREGABALIN
     Indication: NEURALGIA
  13. MECLIZINE [Concomitant]
     Active Substance: MECLIZINE HYDROCHLORIDE
     Indication: DIZZINESS
     Dosage: 25 MG, AS NEEDED (TID)
     Route: 048
  14. TRIMETHOPRIM. [Concomitant]
     Active Substance: TRIMETHOPRIM
     Indication: PROPHYLAXIS
     Dosage: 50 MG, 1X/DAY (QHS, BEDTIME)
     Route: 048
  15. ASPIRIN (E.C.) [Concomitant]
     Active Substance: ASPIRIN
     Indication: CARDIAC DISORDER
     Dosage: 81 MG, DAILY
  16. CALCIUM/D3 [Concomitant]
     Active Substance: CALCIUM\CHOLECALCIFEROL
     Indication: HYPOVITAMINOSIS
     Dosage: 2 DF, 1X/DAY
     Route: 048
  17. ACETAMINOPHEN. [Concomitant]
     Active Substance: ACETAMINOPHEN
     Indication: PAIN
     Dosage: 500 MG, AS NEEDED (EVERY 6 HOURS)
     Route: 048
  18. PROAIR HFA [Concomitant]
     Active Substance: ALBUTEROL SULFATE
     Indication: DYSPNOEA
     Dosage: UNK UNK, AS NEEDED (STRENGTH: 2 PUFFS; DOSE: Q 4-6 H)
     Route: 048
  19. CALCIUM/D3 [Concomitant]
     Active Substance: CALCIUM\CHOLECALCIFEROL
     Indication: CALCIUM DEFICIENCY
  20. DOCUSATE SODIUM. [Concomitant]
     Active Substance: DOCUSATE SODIUM
     Indication: DIARRHOEA
     Dosage: 100 MG, AS NEEDED (BID)
     Route: 048
  21. PANTOPRAZOLE [Concomitant]
     Active Substance: PANTOPRAZOLE
     Indication: GASTROOESOPHAGEAL REFLUX DISEASE
     Dosage: 40 MG, DAILY
  22. PANTOPRAZOLE [Concomitant]
     Active Substance: PANTOPRAZOLE
     Dosage: 40 MG, 1X/DAY
  23. NASAL [Concomitant]
     Indication: NASAL DRYNESS
     Dosage: UNK UNK, AS NEEDED (EACH NOSTRIL)
     Route: 045
  24. ACID REDUCER [Concomitant]
     Indication: GASTROOESOPHAGEAL REFLUX DISEASE
     Dosage: UNK UNK, AS NEEDED (AT HS)
     Route: 048
  25. PROAIR HFA [Concomitant]
     Active Substance: ALBUTEROL SULFATE
     Indication: WHEEZING
  26. FAMOTIDINE. [Concomitant]
     Active Substance: FAMOTIDINE
     Indication: NOCTURIA
     Dosage: 40 MG, 1X/DAY (AT BEDTIME)
     Route: 048
  27. ALPRAZOLAM. [Concomitant]
     Active Substance: ALPRAZOLAM
     Indication: RESTLESSNESS
     Dosage: 0.25 MG, AS NEEDED
     Route: 048
  28. EYE DROPS [Concomitant]
     Active Substance: UNSPECIFIED INGREDIENT
     Indication: DRY EYE
     Dosage: UNK UNK, AS NEEDED (1-2 DROPS EACH EYE)
     Route: 047
  29. AZO CRANBERRY [Concomitant]
     Active Substance: DIETARY SUPPLEMENT
     Indication: SUPPLEMENTATION THERAPY
     Dosage: UNK UNK, AS NEEDED (STRENGTH: 250-60 MG, DAILY)
     Route: 048
  30. LYRICA [Suspect]
     Active Substance: PREGABALIN
     Indication: NEUROPATHY PERIPHERAL
     Dosage: 150 MG, 2X/DAY
     Route: 048
  31. LEVOTHYROXINE. [Concomitant]
     Active Substance: LEVOTHYROXINE
     Indication: HYPOTHYROIDISM
  32. VITAMIN D3 [Concomitant]
     Active Substance: CHOLECALCIFEROL
     Dosage: 2000 IU, 1X/DAY
  33. ACID REDUCER [Concomitant]
     Indication: GASTROOESOPHAGEAL REFLUX DISEASE

REACTIONS (9)
  - Dyspnoea [Unknown]
  - Constipation [Unknown]
  - Irritable bowel syndrome [Unknown]
  - Cardiac disorder [Unknown]
  - Gastrooesophageal reflux disease [Unknown]
  - Hypothyroidism [Unknown]
  - Dizziness [Unknown]
  - Hypersensitivity [Unknown]
  - Anxiety [Unknown]
